FAERS Safety Report 5732408-6 (Version None)
Quarter: 2008Q2

REPORT INFORMATION
  Report Type: 
  Country: None (occurrence: None)
  Receive Date: 20080508
  Receipt Date: 20080429
  Transmission Date: 20081010
  Serious: Yes (Other)
  Sender: FDA-Public Use
  Company Number: GB-PFIZER INC-2008038820

PATIENT
  Age: 63 Year
  Sex: Female
  Weight: 83.5 kg

DRUGS (11)
  1. CHANTIX [Suspect]
     Indication: SMOKING CESSATION THERAPY
     Route: 048
     Dates: start: 20080225, end: 20080421
  2. ATORVASTATIN CALCIUM [Concomitant]
  3. CALCICHEW-D3 [Concomitant]
  4. ACETAMINOPHEN W/ CODEINE [Concomitant]
  5. FUROSEMIDE [Concomitant]
  6. GLICLAZIDE [Concomitant]
  7. BONIVA [Concomitant]
  8. INSULIN [Concomitant]
  9. METFORMIN HYDROCHLORIDE [Concomitant]
  10. RANITIDINE [Concomitant]
  11. PROCHLORPERAZINE [Concomitant]

REACTIONS (2)
  - DIABETES MELLITUS INADEQUATE CONTROL [None]
  - NAUSEA [None]
